FAERS Safety Report 9331173 (Version 1)
Quarter: 2013Q2

REPORT INFORMATION
  Report Type: Spontaneous
  Country: JP (occurrence: JP)
  Receive Date: 20130605
  Receipt Date: 20130605
  Transmission Date: 20140414
  Serious: Yes (Other)
  Sender: FDA-Public Use
  Company Number: JP-SANOFI-AVENTIS-2013SA056351

PATIENT
  Sex: Female
  Weight: 80 kg

DRUGS (3)
  1. MYSLEE [Suspect]
     Indication: PRODUCT USED FOR UNKNOWN INDICATION
     Route: 048
  2. ROHYPNOL [Concomitant]
  3. LULLAN [Concomitant]

REACTIONS (2)
  - Overdose [Unknown]
  - Victim of crime [Unknown]
